FAERS Safety Report 21972601 (Version 3)
Quarter: 2023Q1

REPORT INFORMATION
  Report Type: Spontaneous
  Country: FR (occurrence: FR)
  Receive Date: 20230209
  Receipt Date: 20230310
  Transmission Date: 20230417
  Serious: Yes (Death, Hospitalization, Other)
  Sender: FDA-Public Use
  Company Number: FR-MYLANLABS-2004048542

PATIENT
  Age: 83 Year
  Sex: Male
  Weight: 45 kg

DRUGS (8)
  1. AMLODIPINE BESYLATE [Suspect]
     Active Substance: AMLODIPINE BESYLATE
     Indication: Ill-defined disorder
     Dosage: 5 MG, 1X/DAY
     Route: 048
     Dates: start: 20040201
  2. AMLODIPINE BESYLATE [Suspect]
     Active Substance: AMLODIPINE BESYLATE
     Dosage: UNK
     Route: 048
  3. GEMCITABINE HYDROCHLORIDE [Suspect]
     Active Substance: GEMCITABINE HYDROCHLORIDE
     Indication: Pleural neoplasm
     Dosage: UNK
     Route: 042
     Dates: end: 20040201
  4. MORPHINE [Suspect]
     Active Substance: MORPHINE
     Dosage: UNK
     Route: 048
  5. ROXITHROMYCIN [Suspect]
     Active Substance: ROXITHROMYCIN
     Indication: Bronchitis
     Dosage: UNK
     Route: 048
     Dates: start: 20040617, end: 20040617
  6. HYDROCHLOROTHIAZIDE\VALSARTAN [Suspect]
     Active Substance: HYDROCHLOROTHIAZIDE\VALSARTAN
     Indication: Ill-defined disorder
     Dosage: UNK
     Route: 048
  7. TROXERUTIN [Suspect]
     Active Substance: TROXERUTIN
     Indication: Ill-defined disorder
     Dosage: UNK
     Route: 065
  8. ACETYLCYSTEINE [Concomitant]
     Active Substance: ACETYLCYSTEINE
     Indication: Ill-defined disorder
     Dosage: UNK
     Route: 048
     Dates: start: 20040617

REACTIONS (17)
  - Hepatitis fulminant [Fatal]
  - Fall [Unknown]
  - Dyspnoea [Unknown]
  - Pleural effusion [Unknown]
  - Renal failure [Recovering/Resolving]
  - Hyperkalaemia [Recovered/Resolved]
  - Hyponatraemia [Unknown]
  - Cyanosis [Unknown]
  - Oedema peripheral [Unknown]
  - Bronchitis [Unknown]
  - Hypotension [Not Recovered/Not Resolved]
  - Aspartate aminotransferase increased [Unknown]
  - Alanine aminotransferase increased [Unknown]
  - Blood alkaline phosphatase increased [Unknown]
  - Hepatomegaly [Unknown]
  - Blood creatinine increased [Unknown]
  - Prothrombin time shortened [Unknown]

NARRATIVE: CASE EVENT DATE: 20040601
